FAERS Safety Report 4986649-6 (Version None)
Quarter: 2006Q2

REPORT INFORMATION
  Report Type: 
  Country: None (occurrence: None)
  Receive Date: 20060428
  Receipt Date: 20060316
  Transmission Date: 20061013
  Serious: Yes (Hospitalization)
  Sender: FDA-Public Use
  Company Number: JP-BOEHRINGER INGELHEIM PHARMACEUTICALS, INC.-2006-BP-03017NB

PATIENT
  Sex: Female
  Weight: 81.4 kg

DRUGS (7)
  1. MICARDIS [Suspect]
     Indication: HYPERTENSION
     Route: 048
     Dates: start: 20051206, end: 20060302
  2. FAMOSTAGINE-D (FAMOTIDINE) [Concomitant]
     Indication: GASTRITIS
     Route: 048
     Dates: start: 20050927, end: 20060220
  3. ATELEC [Concomitant]
     Indication: HYPERTENSION
     Route: 048
     Dates: start: 20050926
  4. THEO-DUR [Concomitant]
     Indication: ASTHMA
     Route: 048
     Dates: start: 20050927, end: 20060220
  5. VASOLAN [Concomitant]
     Indication: ARRHYTHMIA SUPRAVENTRICULAR
     Route: 048
     Dates: start: 20051017
  6. DEPAS [Concomitant]
     Route: 048
     Dates: start: 20050926
  7. MUCOSOLVAN L [Concomitant]
     Indication: ASTHMA
     Route: 048
     Dates: start: 20050927, end: 20060220

REACTIONS (2)
  - LYMPHOCYTE STIMULATION TEST POSITIVE [None]
  - PNEUMONIA [None]
